FAERS Safety Report 5410402-2 (Version None)
Quarter: 2007Q3

REPORT INFORMATION
  Report Type: 
  Country: None (occurrence: None)
  Receive Date: 20070713
  Receipt Date: 20070529
  Transmission Date: 20080115
  Serious: No
  Sender: FDA-Public Use
  Company Number: 2007SP002009

PATIENT
  Age: 80 Year
  Sex: Male

DRUGS (7)
  1. LUNESTA [Suspect]
     Indication: INSOMNIA
     Dosage: 2 MG;ORAL
     Route: 048
     Dates: start: 20070501
  2. DEMADEX [Concomitant]
  3. PRAVACHOL [Concomitant]
  4. NIASPAN [Concomitant]
  5. COZAAR [Concomitant]
  6. AMLODIPINE BESYLATE [Concomitant]
  7. ZEBETA [Concomitant]

REACTIONS (5)
  - DIZZINESS [None]
  - DRUG INEFFECTIVE [None]
  - FATIGUE [None]
  - GAIT DISTURBANCE [None]
  - MIDDLE INSOMNIA [None]
